FAERS Safety Report 7916725-7 (Version None)
Quarter: 2011Q4

REPORT INFORMATION
  Report Type: 
  Country: None (occurrence: None)
  Receive Date: 20111114
  Receipt Date: 20111101
  Transmission Date: 20120403
  Serious: Yes (Other)
  Sender: FDA-Public Use
  Company Number: 2011SP051780

PATIENT
  Sex: Male

DRUGS (4)
  1. INTRON A [Suspect]
     Indication: HEPATITIS C
     Dosage: TIW
     Dates: start: 20020104, end: 20020628
  2. INTRON A [Suspect]
     Indication: HEPATITIS C
     Dosage: TIW
     Dates: start: 20111014
  3. RIBAVIRIN [Suspect]
     Indication: HEPATITIS C
     Dates: start: 20111014
  4. RIBAVIRIN [Suspect]
     Indication: HEPATITIS C
     Dates: start: 20020104, end: 20020628

REACTIONS (5)
  - WEIGHT DECREASED [None]
  - SKIN DISORDER [None]
  - HEPATIC CIRRHOSIS [None]
  - ALOPECIA [None]
  - NAUSEA [None]
